FAERS Safety Report 8520376-3 (Version None)
Quarter: 2012Q3

REPORT INFORMATION
  Report Type: 
  Country: None (occurrence: None)
  Receive Date: 20120713
  Receipt Date: 20120713
  Transmission Date: 20120928
  Serious: Yes (Life-Threatening, Hospitalization)
  Sender: FDA-Public Use
  Company Number: None

PATIENT
  Age: 60 Year
  Sex: Male
  Weight: 73.3 kg

DRUGS (1)
  1. MORPHINE SULFATE [Suspect]
     Indication: PAIN
     Dates: start: 20120418, end: 20120418

REACTIONS (4)
  - CARDIAC ARREST [None]
  - POST PROCEDURAL COMPLICATION [None]
  - BRADYCARDIA [None]
  - PULSELESS ELECTRICAL ACTIVITY [None]
